FAERS Safety Report 5648453-5 (Version None)
Quarter: 2008Q1

REPORT INFORMATION
  Report Type: 
  Country: None (occurrence: None)
  Receive Date: 20080131
  Receipt Date: 20071018
  Transmission Date: 20080703
  Serious: No
  Sender: FDA-Public Use
  Company Number: US200708000496

PATIENT
  Age: 74 Year
  Sex: Female
  Weight: 119.7 kg

DRUGS (8)
  1. BYETTA [Suspect]
     Indication: TYPE 2 DIABETES MELLITUS
     Dosage: 5 UG, 2/D, SUBCUTANEOUS ; 10 UG, SUBCUTANEOUS ; 5 UG, 2/D, SUBCUTANEOUS
     Route: 058
     Dates: start: 20070628, end: 20070701
  2. BYETTA [Suspect]
     Indication: TYPE 2 DIABETES MELLITUS
     Dosage: 5 UG, 2/D, SUBCUTANEOUS ; 10 UG, SUBCUTANEOUS ; 5 UG, 2/D, SUBCUTANEOUS
     Route: 058
     Dates: start: 20070727, end: 20070727
  3. BYETTA [Suspect]
     Indication: TYPE 2 DIABETES MELLITUS
     Dosage: 5 UG, 2/D, SUBCUTANEOUS ; 10 UG, SUBCUTANEOUS ; 5 UG, 2/D, SUBCUTANEOUS
     Route: 058
     Dates: start: 20070701
  4. BYETTA [Suspect]
  5. METFORMIN HCL [Concomitant]
  6. PRANDIN /USA/ (REPAGLINIDE) [Concomitant]
  7. PREVACID [Concomitant]
  8. LANTUS [Concomitant]

REACTIONS (10)
  - ASTHENIA [None]
  - BACK PAIN [None]
  - BLOOD GLUCOSE INCREASED [None]
  - CYSTITIS [None]
  - DECREASED APPETITE [None]
  - GAIT DISTURBANCE [None]
  - NAUSEA [None]
  - PAIN [None]
  - VOMITING [None]
  - WEIGHT DECREASED [None]
